FAERS Safety Report 13811018 (Version 1)
Quarter: 2017Q3

REPORT INFORMATION
  Report Type: Spontaneous
  Country: US (occurrence: US)
  Receive Date: 20170728
  Receipt Date: 20170728
  Transmission Date: 20171127
  Serious: No
  Sender: FDA-Public Use
  Company Number: US-ROCHE-1036228

PATIENT
  Age: 72 Year
  Sex: Female
  Weight: 49.94 kg

DRUGS (1)
  1. BONIVA [Suspect]
     Active Substance: IBANDRONATE SODIUM
     Indication: PRODUCT USED FOR UNKNOWN INDICATION
     Route: 065
     Dates: start: 20120115

REACTIONS (6)
  - Dyspnoea [Unknown]
  - Headache [Unknown]
  - Musculoskeletal pain [Unknown]
  - Neck pain [Unknown]
  - Chills [Unknown]
  - Dizziness [Unknown]
